FAERS Safety Report 8865591 (Version 1)
Quarter: 2012Q4

REPORT INFORMATION
  Report Type: 
  Country: US (occurrence: US)
  Receive Date: 20121024
  Receipt Date: 20121024
  Transmission Date: 20130627
  Serious: No
  Sender: FDA-Public Use
  Company Number: US-AMGEN-USASP2012003925

PATIENT
  Sex: Female
  Weight: 77.1 kg

DRUGS (3)
  1. ENBREL [Suspect]
     Indication: PRODUCT USED FOR UNKNOWN INDICATION
     Dosage: 50 mg, qwk
     Route: 058
  2. CELEBREX [Concomitant]
     Dosage: 100 mg, UNK
  3. TRIAMTEREEN/HYDROCHLOOTTHIAZIDE [Concomitant]
     Dosage: 37.5-25

REACTIONS (2)
  - Staphylococcal infection [Unknown]
  - Arthritis infective [Unknown]
